FAERS Safety Report 10241670 (Version 1)
Quarter: 2014Q2

REPORT INFORMATION
  Report Type: Spontaneous
  Country: DK (occurrence: DK)
  Receive Date: 20140617
  Receipt Date: 20140617
  Transmission Date: 20141212
  Serious: Yes (Other)
  Sender: FDA-Public Use
  Company Number: DK-BAYER-2014-086809

PATIENT
  Age: 50 Year
  Sex: Male

DRUGS (2)
  1. XOFIGO [Suspect]
     Dosage: UNK
     Dates: start: 201403
  2. XOFIGO [Suspect]
     Dosage: UNK
     Dates: start: 201405

REACTIONS (1)
  - Femur fracture [None]
